FAERS Safety Report 8854194 (Version 6)
Quarter: 2012Q4

REPORT INFORMATION
  Report Type: Report from Study
  Country: DZ (occurrence: DZ)
  Receive Date: 20121022
  Receipt Date: 20121207
  Transmission Date: 20130627
  Serious: Yes (Life-Threatening)
  Sender: FDA-Public Use
  Company Number: DZ-NOVOPROD-362121

PATIENT
  Age: 66 Year
  Sex: Female
  Weight: 75.5 kg

DRUGS (6)
  1. NOVOMIX 30 FLEXPEN [Suspect]
     Indication: TYPE 2 DIABETES MELLITUS
     Dosage: 30 IU,qd
     Route: 058
     Dates: start: 20120416, end: 20121014
  2. METFORMIN [Concomitant]
     Indication: TYPE 2 DIABETES MELLITUS
     Dosage: 2250 mg, qd
     Dates: start: 20110131
  3. COAPROVEL [Concomitant]
     Indication: HYPERTENSION
     Dosage: 300/12.5 mg
     Route: 048
     Dates: start: 20110131
  4. AMLODIPINE [Concomitant]
     Indication: HYPERTENSION
     Dosage: 0.5 mg, qd
     Route: 048
     Dates: start: 20050607
  5. ASPIRIN [Concomitant]
     Indication: PROPHYLAXIS
     Dosage: 100 mg, qd
     Route: 048
     Dates: start: 200503
  6. ATORVASTATINE [Concomitant]
     Indication: DYSLIPIDAEMIA
     Dosage: 20 mg, qd
     Route: 048
     Dates: start: 20100727

REACTIONS (1)
  - Myocardial ischaemia [Recovered/Resolved]
